FAERS Safety Report 11709105 (Version 1)
Quarter: 2015Q4

REPORT INFORMATION
  Report Type: Spontaneous
  Country: US (occurrence: US)
  Receive Date: 20151104
  Receipt Date: 20151104
  Transmission Date: 20160304
  Serious: No
  Sender: FDA-Public Use
  Company Number: US-ELI_LILLY_AND_COMPANY-US201012002028

PATIENT
  Age: 61 Year
  Sex: Female

DRUGS (2)
  1. FORTEO [Suspect]
     Active Substance: TERIPARATIDE
     Indication: OSTEOPOROSIS
     Dosage: EVERY OTHER DAY
     Route: 065
     Dates: start: 201010, end: 20101112
  2. CALCIUM [Concomitant]
     Active Substance: CALCIUM

REACTIONS (7)
  - Inappropriate schedule of drug administration [Unknown]
  - Nausea [Recovered/Resolved]
  - Muscle spasms [Unknown]
  - Pain [Unknown]
  - Pain in extremity [Unknown]
  - Adverse event [Unknown]
  - Tremor [Unknown]
